FAERS Safety Report 16139169 (Version 3)
Quarter: 2023Q4

REPORT INFORMATION
  Report Type: Other
  Country: JP (occurrence: None)
  Receive Date: 20190401
  Receipt Date: 20231207
  Transmission Date: 20240109
  Serious: Yes (Other)
  Sender: FDA-Public Use
  Company Number: JP-ROCHE-2289630

PATIENT

DRUGS (5)
  1. TRASTUZUMAB [Suspect]
     Active Substance: TRASTUZUMAB
     Indication: HER2 positive breast cancer
     Dosage: LOADING DOSE; OVER 90 MINUTES
     Route: 042
  2. TRASTUZUMAB [Suspect]
     Active Substance: TRASTUZUMAB
     Dosage: MAINTENANCE DOSE; OVER 30 MINUTES
     Route: 042
  3. PERTUZUMAB [Suspect]
     Active Substance: PERTUZUMAB
     Indication: HER2 positive breast cancer
     Dosage: LOADING DOSE; OVER 60 MINUTE INFUSION
     Route: 042
  4. PERTUZUMAB [Suspect]
     Active Substance: PERTUZUMAB
     Dosage: MAINTENANCE DOSE; OVER 30 MINUTE INFUSION
     Route: 042
  5. ERIBULIN MESYLATE [Suspect]
     Active Substance: ERIBULIN MESYLATE
     Indication: HER2 positive breast cancer
     Dosage: ON DAYS 1 AND 8 OF EACH 21-DAY CYCLE
     Route: 042

REACTIONS (28)
  - Neutrophil count decreased [Unknown]
  - White blood cell count decreased [Unknown]
  - Anaemia [Unknown]
  - Fatigue [Unknown]
  - Peripheral sensory neuropathy [Unknown]
  - Decreased appetite [Unknown]
  - Myalgia [Unknown]
  - Pneumonia [Unknown]
  - Neutropenia [Unknown]
  - Aspartate aminotransferase increased [Unknown]
  - Alanine aminotransferase increased [Unknown]
  - Blood bilirubin increased [Unknown]
  - Blood creatinine increased [Unknown]
  - Alopecia [Unknown]
  - Stomatitis [Unknown]
  - Peripheral motor neuropathy [Unknown]
  - Diarrhoea [Unknown]
  - Arthralgia [Unknown]
  - Nausea [Unknown]
  - Nail discolouration [Unknown]
  - Dysgeusia [Unknown]
  - Rash [Unknown]
  - Vomiting [Unknown]
  - Oedema peripheral [Unknown]
  - Constipation [Unknown]
  - Epistaxis [Unknown]
  - Olfactory nerve disorder [Unknown]
  - Onychomadesis [Unknown]
